FAERS Safety Report 15331543 (Version 1)
Quarter: 2018Q4

REPORT INFORMATION
  Report Type: Report from Study
  Country: US (occurrence: US)
  Receive Date: 20180829
  Receipt Date: 20180829
  Transmission Date: 20190204
  Serious: No
  Sender: FDA-Public Use
  Company Number: US-DOVA PHARMACEUTICALS INC.-DOV-000137

PATIENT
  Age: 70 Year
  Sex: Male

DRUGS (1)
  1. DOPTELET [Suspect]
     Active Substance: AVATROMBOPAG MALEATE
     Indication: CIRRHOSIS ALCOHOLIC
     Dosage: 3 TABLETS 20 MG EACH; 60 MG, QD
     Route: 048
     Dates: start: 20180718, end: 20180722

REACTIONS (4)
  - Off label use [Unknown]
  - Energy increased [Unknown]
  - Inappropriate schedule of product administration [Unknown]
  - Abdominal distension [Unknown]

NARRATIVE: CASE EVENT DATE: 20180718
